FAERS Safety Report 11524705 (Version 1)
Quarter: 2015Q3

REPORT INFORMATION
  Report Type: Spontaneous
  Country: US (occurrence: US)
  Receive Date: 20150918
  Receipt Date: 20150918
  Transmission Date: 20151125
  Serious: No
  Sender: FDA-Public Use
  Company Number: US-ROCHE-738081

PATIENT
  Age: 61 Year
  Sex: Male

DRUGS (2)
  1. PEGASYS [Suspect]
     Active Substance: PEGINTERFERON ALFA-2A
     Indication: HEPATITIS C
     Dosage: FORM: PREFILLED SYRINGE
     Route: 065
     Dates: start: 20100504, end: 20101008
  2. RIBAVIRIN. [Suspect]
     Active Substance: RIBAVIRIN
     Indication: HEPATITIS C
     Route: 065
     Dates: start: 20100504, end: 20101008

REACTIONS (5)
  - Fatigue [Unknown]
  - Vomiting [Recovering/Resolving]
  - Drug ineffective [Unknown]
  - Decreased appetite [Unknown]
  - Neck pain [Unknown]

NARRATIVE: CASE EVENT DATE: 20101028
